FAERS Safety Report 18136163 (Version 7)
Quarter: 2020Q4

REPORT INFORMATION
  Report Type: Spontaneous
  Country: TW (occurrence: TW)
  Receive Date: 20200811
  Receipt Date: 20201209
  Transmission Date: 20210113
  Serious: Yes (Life-Threatening, Hospitalization)
  Sender: FDA-Public Use
  Company Number: TW-CELGENEUS-TWN-20200703150

PATIENT
  Age: 57 Year
  Sex: Male

DRUGS (174)
  1. ABRAXANE [Suspect]
     Active Substance: PACLITAXEL
     Dosage: 80 MILLIGRAM/SQ. METER
     Route: 041
     Dates: start: 20180112, end: 20180112
  2. DURVALUMAB. [Suspect]
     Active Substance: DURVALUMAB
     Dosage: 75 MILLIGRAM
     Route: 042
     Dates: start: 20180323, end: 20180323
  3. DURVALUMAB. [Suspect]
     Active Substance: DURVALUMAB
     Dosage: 1500 MILLIGRAM
     Route: 042
     Dates: start: 20180420, end: 20180420
  4. DURVALUMAB. [Suspect]
     Active Substance: DURVALUMAB
     Dosage: 1500 MILLIGRAM
     Route: 042
     Dates: start: 20180615, end: 20180615
  5. DURVALUMAB. [Suspect]
     Active Substance: DURVALUMAB
     Dosage: 1500 MILLIGRAM
     Route: 042
     Dates: start: 20181130, end: 20181130
  6. DURVALUMAB. [Suspect]
     Active Substance: DURVALUMAB
     Dosage: 1500 MILLIGRAM
     Route: 042
     Dates: start: 20190322, end: 20190322
  7. TREMELIMUMAB. [Concomitant]
     Active Substance: TREMELIMUMAB
     Dosage: 75 MILLIGRAM
     Route: 042
     Dates: start: 20180223, end: 20180223
  8. CARBOPLATIN. [Concomitant]
     Active Substance: CARBOPLATIN
     Indication: NON-SMALL CELL LUNG CANCER
     Dosage: 5 AUC
     Route: 042
     Dates: start: 20171027, end: 20171027
  9. CLOBETASOL [Concomitant]
     Active Substance: CLOBETASOL
     Indication: PEMPHIGOID
     Dosage: 1 APPLICATION
     Route: 061
     Dates: start: 20200529
  10. HYDROXYZINE [Concomitant]
     Active Substance: HYDROXYZINE HYDROCHLORIDE
     Indication: PEMPHIGOID
     Dosage: 25 MILLIGRAM
     Route: 048
     Dates: start: 20200626, end: 20200709
  11. HYDROXYZINE [Concomitant]
     Active Substance: HYDROXYZINE HYDROCHLORIDE
     Dosage: 25 MILLIGRAM
     Route: 048
     Dates: start: 20200714, end: 20200816
  12. GLIMEPIRIDE. [Concomitant]
     Active Substance: GLIMEPIRIDE
     Indication: NEUROFIBROMATOSIS
  13. DEXAMETHASONE. [Concomitant]
     Active Substance: DEXAMETHASONE
     Dosage: 10 MILLIGRAM
     Route: 042
     Dates: start: 20180105, end: 20180105
  14. DEXAMETHASONE. [Concomitant]
     Active Substance: DEXAMETHASONE
     Dosage: 10 MILLIGRAM
     Route: 042
     Dates: start: 20180202, end: 20180202
  15. METOCLOPRAMIDE. [Concomitant]
     Active Substance: METOCLOPRAMIDE
     Dosage: 10 MILLIGRAM
     Route: 042
     Dates: start: 20171017, end: 20171017
  16. METOCLOPRAMIDE. [Concomitant]
     Active Substance: METOCLOPRAMIDE
     Dosage: 10 MILLIGRAM
     Route: 042
     Dates: start: 20180209, end: 20180209
  17. PALONOSETRON. [Concomitant]
     Active Substance: PALONOSETRON HYDROCHLORIDE
     Dosage: 5 MILLIGRAM
     Route: 042
     Dates: start: 20171017, end: 20171017
  18. DOXYCYCLINE. [Concomitant]
     Active Substance: DOXYCYCLINE
     Dosage: 200 MILLIGRAM
     Route: 048
     Dates: start: 20200612, end: 20200618
  19. PREDNISOLONE. [Concomitant]
     Active Substance: PREDNISOLONE
     Dosage: 15 MILLIGRAM
     Route: 048
     Dates: start: 20200714, end: 20200720
  20. ABRAXANE [Suspect]
     Active Substance: PACLITAXEL
     Dosage: 75 MILLIGRAM/SQ. METER
     Route: 041
     Dates: start: 20180209, end: 20180209
  21. DURVALUMAB. [Suspect]
     Active Substance: DURVALUMAB
     Indication: NON-SMALL CELL LUNG CANCER
     Dosage: 1500 MILLIGRAM
     Route: 042
     Dates: start: 20171027, end: 20171027
  22. DURVALUMAB. [Suspect]
     Active Substance: DURVALUMAB
     Dosage: 1500 MILLIGRAM
     Route: 042
     Dates: start: 20180716, end: 20180716
  23. DURVALUMAB. [Suspect]
     Active Substance: DURVALUMAB
     Dosage: 1500 MILLIGRAM
     Route: 042
     Dates: start: 20190517, end: 20190517
  24. DURVALUMAB. [Suspect]
     Active Substance: DURVALUMAB
     Dosage: 1500 MILLIGRAM
     Route: 042
     Dates: start: 20191004, end: 20191004
  25. DURVALUMAB. [Suspect]
     Active Substance: DURVALUMAB
     Dosage: 1500 MILLIGRAM
     Route: 042
     Dates: start: 20191129, end: 20191129
  26. DURVALUMAB. [Suspect]
     Active Substance: DURVALUMAB
     Dosage: 1500 MILLIGRAM
     Route: 042
     Dates: start: 20200417, end: 20200417
  27. TREMELIMUMAB. [Concomitant]
     Active Substance: TREMELIMUMAB
     Dosage: 75 MILLIGRAM
     Route: 042
     Dates: start: 20171124, end: 20171124
  28. DEXAMETHASONE. [Concomitant]
     Active Substance: DEXAMETHASONE
     Dosage: 10 MILLIGRAM
     Route: 042
     Dates: start: 20171215, end: 20171215
  29. DIPHENHYDRAMINE. [Concomitant]
     Active Substance: DIPHENHYDRAMINE
     Indication: PROPHYLAXIS
     Dosage: 30 MILLIGRAM
     Route: 042
     Dates: start: 20171027, end: 20171027
  30. DIPHENHYDRAMINE. [Concomitant]
     Active Substance: DIPHENHYDRAMINE
     Dosage: 30 MILLIGRAM
     Route: 042
     Dates: start: 20171017, end: 20171017
  31. FAMOTIDINE. [Concomitant]
     Active Substance: FAMOTIDINE
     Route: 048
     Dates: start: 20200714
  32. METOCLOPRAMIDE. [Concomitant]
     Active Substance: METOCLOPRAMIDE
     Indication: PROPHYLAXIS
     Dosage: 10 MILLIGRAM
     Route: 042
     Dates: start: 20171027, end: 20171027
  33. METOCLOPRAMIDE. [Concomitant]
     Active Substance: METOCLOPRAMIDE
     Dosage: 10 MILLIGRAM
     Route: 042
     Dates: start: 20180202, end: 20180202
  34. PALONOSETRON. [Concomitant]
     Active Substance: PALONOSETRON HYDROCHLORIDE
     Indication: PROPHYLAXIS
     Dosage: 5 MILLIGRAM
     Route: 042
     Dates: start: 20171027, end: 20171027
  35. PALONOSETRON. [Concomitant]
     Active Substance: PALONOSETRON HYDROCHLORIDE
     Dosage: 5 MILLIGRAM
     Route: 042
     Dates: start: 20171208, end: 20171208
  36. PALONOSETRON. [Concomitant]
     Active Substance: PALONOSETRON HYDROCHLORIDE
     Dosage: 5 MILLIGRAM
     Route: 042
     Dates: start: 20171222, end: 20171222
  37. FILGRASTIM [Concomitant]
     Active Substance: FILGRASTIM
     Indication: WHITE BLOOD CELL COUNT DECREASED
     Dosage: 300 MICROGRAM
     Route: 058
     Dates: start: 20171110, end: 20171111
  38. FILGRASTIM [Concomitant]
     Active Substance: FILGRASTIM
     Dosage: 300 MICROGRAM
     Route: 058
     Dates: start: 20171201, end: 20171202
  39. FILGRASTIM [Concomitant]
     Active Substance: FILGRASTIM
     Dosage: 300 MICROGRAM
     Route: 058
     Dates: start: 20171222, end: 20171223
  40. ACETAMINOPHEN. [Concomitant]
     Active Substance: ACETAMINOPHEN
     Indication: APPENDICITIS
     Route: 048
     Dates: start: 20200724, end: 20200730
  41. DOXYCYCLINE. [Concomitant]
     Active Substance: DOXYCYCLINE
     Dosage: 200 MILLIGRAM
     Route: 048
     Dates: start: 20200626, end: 20200709
  42. GRISEOFULVIN. [Concomitant]
     Active Substance: GRISEOFULVIN
     Indication: PEMPHIGOID
     Dosage: 2 DOSAGE FORMS
     Route: 061
     Dates: start: 20200421, end: 20200423
  43. GENTAMYCIN-MP [Concomitant]
     Active Substance: GENTAMICIN SULFATE
     Indication: PEMPHIGOID
     Dosage: 1 APPLICATION
     Route: 061
     Dates: start: 20200630, end: 20200712
  44. ABRAXANE [Suspect]
     Active Substance: PACLITAXEL
     Dosage: 100 MILLIGRAM/SQ. METER
     Route: 041
     Dates: start: 20171124, end: 20171124
  45. ABRAXANE [Suspect]
     Active Substance: PACLITAXEL
     Dosage: 100 MILLIGRAM/SQ. METER
     Route: 041
     Dates: start: 20171215, end: 20171215
  46. ABRAXANE [Suspect]
     Active Substance: PACLITAXEL
     Dosage: 100 MILLIGRAM/SQ. METER
     Route: 041
     Dates: start: 20171222, end: 20171222
  47. DURVALUMAB. [Suspect]
     Active Substance: DURVALUMAB
     Dosage: 1500 MILLIGRAM
     Route: 042
     Dates: start: 20181102, end: 20181102
  48. DURVALUMAB. [Suspect]
     Active Substance: DURVALUMAB
     Dosage: 1500 MILLIGRAM
     Route: 042
     Dates: start: 20181228, end: 20181228
  49. DURVALUMAB. [Suspect]
     Active Substance: DURVALUMAB
     Dosage: 1500 MILLIGRAM
     Route: 042
     Dates: start: 20190125, end: 20190125
  50. DURVALUMAB. [Suspect]
     Active Substance: DURVALUMAB
     Dosage: 1500 MILLIGRAM
     Route: 042
     Dates: start: 20190614, end: 20190614
  51. TREMELIMUMAB. [Concomitant]
     Active Substance: TREMELIMUMAB
     Dosage: 75 MILLIGRAM
     Route: 042
     Dates: start: 20180126, end: 20180126
  52. CARBOPLATIN. [Concomitant]
     Active Substance: CARBOPLATIN
     Dosage: 5 AUC
     Route: 042
     Dates: start: 20171222, end: 20171222
  53. CARBOPLATIN. [Concomitant]
     Active Substance: CARBOPLATIN
     Dosage: 4.5 AUC
     Route: 042
     Dates: start: 20180126, end: 20180126
  54. METFORMIN [Concomitant]
     Active Substance: METFORMIN HYDROCHLORIDE
     Indication: DIABETES MELLITUS
     Dosage: 500 MILLIGRAM
     Route: 048
     Dates: start: 201412, end: 20180222
  55. GLIMEPIRIDE. [Concomitant]
     Active Substance: GLIMEPIRIDE
     Indication: TYPE 2 DIABETES MELLITUS
     Dosage: 2 MILLIGRAM
     Route: 048
     Dates: start: 201412, end: 2019
  56. GLIMEPIRIDE. [Concomitant]
     Active Substance: GLIMEPIRIDE
     Indication: NEUROFIBROMATOSIS
     Dosage: 2 DOSAGE FORMS
     Route: 048
     Dates: start: 2019
  57. DIPHENHYDRAMINE. [Concomitant]
     Active Substance: DIPHENHYDRAMINE
     Dosage: 30 MILLIGRAM
     Route: 042
     Dates: start: 20171208, end: 20171208
  58. FAMOTIDINE. [Concomitant]
     Active Substance: FAMOTIDINE
     Route: 048
     Dates: start: 20200529
  59. METOCLOPRAMIDE. [Concomitant]
     Active Substance: METOCLOPRAMIDE
     Dosage: 10 MILLIGRAM
     Route: 042
     Dates: start: 20171208, end: 20171208
  60. FILGRASTIM [Concomitant]
     Active Substance: FILGRASTIM
     Dosage: 300 MICROGRAM
     Route: 058
     Dates: start: 20171204, end: 20171204
  61. FILGRASTIM [Concomitant]
     Active Substance: FILGRASTIM
     Dosage: 300 MICROGRAM
     Route: 058
     Dates: start: 20180102, end: 20180102
  62. ACETYLCYSTEINE. [Concomitant]
     Active Substance: ACETYLCYSTEINE
     Indication: COUGH
     Dosage: 600 MILLIGRAM
     Route: 048
     Dates: start: 20180105, end: 20180125
  63. TRAJENTA DUO [Concomitant]
     Active Substance: LINAGLIPTIN\METFORMIN HYDROCHLORIDE
     Indication: NEUROFIBROMATOSIS
     Dosage: 2 DOSAGE FORMS
     Route: 048
     Dates: start: 20180223, end: 2019
  64. TRAJENTA DUO [Concomitant]
     Active Substance: LINAGLIPTIN\METFORMIN HYDROCHLORIDE
     Indication: NEUROFIBROMATOSIS
     Dosage: 2 DOSAGE FORMS
     Route: 048
     Dates: start: 2019
  65. MEQUITAZINE [Concomitant]
     Active Substance: MEQUITAZINE
     Indication: PEMPHIGOID
     Dosage: 10 MILLIGRAM
     Route: 048
     Dates: start: 20200421, end: 20200513
  66. PREDNISOLONE. [Concomitant]
     Active Substance: PREDNISOLONE
     Indication: PEMPHIGOID
     Dosage: 10 MILLIGRAM
     Route: 048
     Dates: start: 20200529, end: 20200709
  67. CEFTAZIDIME. [Concomitant]
     Active Substance: CEFTAZIDIME
     Indication: PNEUMONIA
     Dosage: UNKNOWN DOSE
     Route: 042
     Dates: start: 20200630, end: 20200712
  68. ABRAXANE [Suspect]
     Active Substance: PACLITAXEL
     Dosage: 100 MILLIGRAM/SQ. METER
     Route: 041
     Dates: start: 20171103, end: 20171103
  69. DURVALUMAB. [Suspect]
     Active Substance: DURVALUMAB
     Dosage: 1500 MILLIGRAM
     Route: 042
     Dates: start: 20181005, end: 20181005
  70. DURVALUMAB. [Suspect]
     Active Substance: DURVALUMAB
     Dosage: 1500 MILLIGRAM
     Route: 042
     Dates: start: 20200221, end: 20200221
  71. DURVALUMAB. [Suspect]
     Active Substance: DURVALUMAB
     Dosage: 1500 MILLIGRAM
     Route: 042
     Dates: start: 20200320, end: 20200320
  72. METFORMIN [Concomitant]
     Active Substance: METFORMIN HYDROCHLORIDE
     Indication: TYPE 2 DIABETES MELLITUS
     Dosage: 500 MILLIGRAM
     Route: 048
     Dates: end: 2019
  73. TETRACYCLINE [Concomitant]
     Active Substance: TETRACYCLINE
     Indication: PEMPHIGOID
     Dosage: 1 GTT (1 APPLICATION)
     Route: 061
     Dates: start: 20180323, end: 20180329
  74. TETRACYCLINE [Concomitant]
     Active Substance: TETRACYCLINE
     Dosage: 1 GTT (1 APPLICATION)
     Route: 061
     Dates: start: 20200515, end: 20200521
  75. DEXAMETHASONE. [Concomitant]
     Active Substance: DEXAMETHASONE
     Indication: PROPHYLAXIS
     Dosage: 10 MILLIGRAM
     Route: 042
     Dates: start: 20171027, end: 20171027
  76. DEXAMETHASONE. [Concomitant]
     Active Substance: DEXAMETHASONE
     Dosage: 10 MILLIGRAM
     Route: 042
     Dates: start: 20171017, end: 20171017
  77. DEXAMETHASONE. [Concomitant]
     Active Substance: DEXAMETHASONE
     Dosage: 10 MILLIGRAM
     Route: 042
     Dates: start: 20171208, end: 20171208
  78. DEXAMETHASONE. [Concomitant]
     Active Substance: DEXAMETHASONE
     Dosage: 10 MILLIGRAM
     Route: 042
     Dates: start: 20180126, end: 20180126
  79. DIPHENHYDRAMINE. [Concomitant]
     Active Substance: DIPHENHYDRAMINE
     Dosage: 30 MILLIGRAM
     Route: 042
     Dates: start: 20180112, end: 20180112
  80. DIPHENHYDRAMINE. [Concomitant]
     Active Substance: DIPHENHYDRAMINE
     Dosage: 30 MILLIGRAM
     Route: 042
     Dates: start: 20180126, end: 20180126
  81. DIPHENHYDRAMINE. [Concomitant]
     Active Substance: DIPHENHYDRAMINE
     Dosage: 30 MILLIGRAM
     Route: 042
     Dates: start: 20180209, end: 20180209
  82. FAMOTIDINE. [Concomitant]
     Active Substance: FAMOTIDINE
     Dosage: 20 MILLIGRAM
     Route: 042
     Dates: start: 20171017, end: 20171017
  83. FAMOTIDINE. [Concomitant]
     Active Substance: FAMOTIDINE
     Dosage: 20 MILLIGRAM
     Route: 042
     Dates: start: 20180112, end: 20180112
  84. METOCLOPRAMIDE. [Concomitant]
     Active Substance: METOCLOPRAMIDE
     Dosage: 10 MILLIGRAM
     Route: 042
     Dates: start: 20180105, end: 20180105
  85. METOCLOPRAMIDE. [Concomitant]
     Active Substance: METOCLOPRAMIDE
     Dosage: 10 MILLIGRAM
     Route: 042
     Dates: start: 20180126, end: 20180126
  86. PALONOSETRON. [Concomitant]
     Active Substance: PALONOSETRON HYDROCHLORIDE
     Dosage: 5 MILLIGRAM
     Route: 042
     Dates: start: 20171124, end: 20171124
  87. PALONOSETRON. [Concomitant]
     Active Substance: PALONOSETRON HYDROCHLORIDE
     Dosage: 5 MILLIGRAM
     Route: 042
     Dates: start: 20180105, end: 20180105
  88. DEXTROMETHORPHAN [Concomitant]
     Active Substance: DEXTROMETHORPHAN
     Indication: COUGH
     Dosage: 60 MILLIGRAM
     Route: 048
     Dates: start: 20180105, end: 20180125
  89. BISOPROLOL [Concomitant]
     Active Substance: BISOPROLOL
     Indication: PNEUMONIA
     Dosage: 5 MILLIGRAM
     Route: 048
     Dates: start: 20200630, end: 20200712
  90. PIRENOXINE [Concomitant]
     Active Substance: PIRENOXINE
     Indication: PEMPHIGOID
     Route: 061
     Dates: start: 20200630, end: 20200712
  91. KETOROLAC [Concomitant]
     Active Substance: KETOROLAC TROMETHAMINE
     Indication: APPENDICITIS
     Route: 042
     Dates: start: 20200724, end: 20200724
  92. ABRAXANE [Suspect]
     Active Substance: PACLITAXEL
     Dosage: 100 MILLIGRAM/SQ. METER
     Route: 041
     Dates: start: 20171117, end: 20171117
  93. ABRAXANE [Suspect]
     Active Substance: PACLITAXEL
     Dosage: 75 MILLIGRAM/SQ. METER
     Route: 041
     Dates: start: 20180126, end: 20180126
  94. ABRAXANE [Suspect]
     Active Substance: PACLITAXEL
     Dosage: 75 MILLIGRAM/SQ. METER
     Route: 041
     Dates: start: 20180202, end: 20180202
  95. DURVALUMAB. [Suspect]
     Active Substance: DURVALUMAB
     Dosage: 75 MILLIGRAM
     Route: 042
     Dates: start: 20171222, end: 20171222
  96. DURVALUMAB. [Suspect]
     Active Substance: DURVALUMAB
     Dosage: 75 MILLIGRAM
     Route: 042
     Dates: start: 20180223, end: 20180223
  97. DURVALUMAB. [Suspect]
     Active Substance: DURVALUMAB
     Dosage: 1500 MILLIGRAM
     Route: 042
     Dates: start: 20190222, end: 20190222
  98. DURVALUMAB. [Suspect]
     Active Substance: DURVALUMAB
     Dosage: 1500 MILLIGRAM
     Route: 042
     Dates: start: 20190809, end: 20190809
  99. DURVALUMAB. [Suspect]
     Active Substance: DURVALUMAB
     Dosage: 1500 MILLIGRAM
     Route: 042
     Dates: start: 20190906, end: 20190906
  100. LEVOCETIRIZINE [Concomitant]
     Active Substance: LEVOCETIRIZINE
     Indication: PEMPHIGOID
     Dosage: 5 MILLIGRAM
     Route: 048
     Dates: start: 20200626, end: 20200709
  101. TETRACYCLINE [Concomitant]
     Active Substance: TETRACYCLINE
     Dosage: 1 GTT (1 APPLICATION)
     Route: 061
     Dates: start: 20200526, end: 20200609
  102. GLIMEPIRIDE AND METFORMIN [Concomitant]
     Indication: TYPE 2 DIABETES MELLITUS
     Dosage: 2 DOSAGE FORMS
     Route: 048
     Dates: start: 2019
  103. DEXAMETHASONE. [Concomitant]
     Active Substance: DEXAMETHASONE
     Dosage: 10 MILLIGRAM
     Route: 042
     Dates: start: 20180112, end: 20180112
  104. FAMOTIDINE. [Concomitant]
     Active Substance: FAMOTIDINE
     Dosage: 20 MILLIGRAM
     Route: 042
     Dates: start: 20171208, end: 20171208
  105. FAMOTIDINE. [Concomitant]
     Active Substance: FAMOTIDINE
     Dosage: 20 MILLIGRAM
     Route: 042
     Dates: start: 20180105, end: 20180105
  106. PALONOSETRON. [Concomitant]
     Active Substance: PALONOSETRON HYDROCHLORIDE
     Dosage: 5 MILLIGRAM
     Route: 042
     Dates: start: 20180112, end: 20180112
  107. PALONOSETRON. [Concomitant]
     Active Substance: PALONOSETRON HYDROCHLORIDE
     Dosage: 5 MILLIGRAM
     Route: 042
     Dates: start: 20180209, end: 20180209
  108. FILGRASTIM [Concomitant]
     Active Substance: FILGRASTIM
     Dosage: 300 MICROGRAM
     Route: 058
     Dates: start: 20171112, end: 20171112
  109. FILGRASTIM [Concomitant]
     Active Substance: FILGRASTIM
     Dosage: 300 MICROGRAM
     Route: 058
     Dates: start: 20171225, end: 20171225
  110. FEXOFENADINE HYDROCHLORIDE. [Concomitant]
     Active Substance: FEXOFENADINE HYDROCHLORIDE
     Indication: PEMPHIGOID
     Dosage: 120 MILLIGRAM
     Route: 048
     Dates: start: 20200511, end: 20200513
  111. LORATADINE. [Concomitant]
     Active Substance: LORATADINE
     Indication: PEMPHIGOID
     Dosage: 20 MILLIGRAM
     Route: 048
     Dates: start: 20200504, end: 20200513
  112. ACETAMINOPHEN. [Concomitant]
     Active Substance: ACETAMINOPHEN
     Indication: PEMPHIGOID
     Dosage: 1500 MILLIGRAM
     Route: 048
     Dates: start: 20200424, end: 20200426
  113. DOXYCYCLINE. [Concomitant]
     Active Substance: DOXYCYCLINE
     Route: 065
     Dates: start: 2020
  114. GRISEOFULVIN. [Concomitant]
     Active Substance: GRISEOFULVIN
     Dosage: 2 DOSAGE FORMS
     Route: 061
     Dates: start: 20200427, end: 20200429
  115. PHENAZOPYRIDINE. [Concomitant]
     Active Substance: PHENAZOPYRIDINE
     Indication: PNEUMONIA
     Dosage: 300 MILLIGRAM
     Route: 048
     Dates: start: 20200630, end: 20200712
  116. ABRAXANE [Suspect]
     Active Substance: PACLITAXEL
     Indication: NON-SMALL CELL LUNG CANCER
     Dosage: 100 MILLIGRAM/SQ. METER
     Route: 041
     Dates: start: 20171027, end: 20171027
  117. ABRAXANE [Suspect]
     Active Substance: PACLITAXEL
     Dosage: 80 MILLIGRAM/SQ. METER
     Route: 041
     Dates: start: 20180105, end: 20180105
  118. DURVALUMAB. [Suspect]
     Active Substance: DURVALUMAB
     Dosage: 75 MILLIGRAM
     Route: 042
     Dates: start: 20180126, end: 20180126
  119. DURVALUMAB. [Suspect]
     Active Substance: DURVALUMAB
     Dosage: 1500 MILLIGRAM
     Route: 042
     Dates: start: 20190419, end: 20190419
  120. DURVALUMAB. [Suspect]
     Active Substance: DURVALUMAB
     Dosage: 1500 MILLIGRAM
     Route: 042
     Dates: start: 20200515, end: 20200515
  121. TREMELIMUMAB. [Concomitant]
     Active Substance: TREMELIMUMAB
     Indication: NON-SMALL CELL LUNG CANCER
     Dosage: 75 MILLIGRAM
     Route: 042
     Dates: start: 20171027, end: 20171027
  122. DEXAMETHASONE. [Concomitant]
     Active Substance: DEXAMETHASONE
     Dosage: 10 MILLIGRAM
     Route: 042
     Dates: start: 20171103, end: 20171103
  123. DIPHENHYDRAMINE. [Concomitant]
     Active Substance: DIPHENHYDRAMINE
     Dosage: 30 MILLIGRAM
     Route: 042
     Dates: start: 20171222, end: 20171222
  124. DIPHENHYDRAMINE. [Concomitant]
     Active Substance: DIPHENHYDRAMINE
     Dosage: 30 MILLIGRAM
     Route: 042
     Dates: start: 20180202, end: 20180202
  125. FAMOTIDINE. [Concomitant]
     Active Substance: FAMOTIDINE
     Dosage: 20 MILLIGRAM
     Route: 042
     Dates: start: 20171215, end: 20171215
  126. FAMOTIDINE. [Concomitant]
     Active Substance: FAMOTIDINE
     Dosage: 20 MILLIGRAM
     Route: 042
     Dates: start: 20180209, end: 20180209
  127. METOCLOPRAMIDE. [Concomitant]
     Active Substance: METOCLOPRAMIDE
     Dosage: 10 MILLIGRAM
     Route: 042
     Dates: start: 20171103, end: 20171103
  128. METOCLOPRAMIDE. [Concomitant]
     Active Substance: METOCLOPRAMIDE
     Dosage: 10 MILLIGRAM
     Route: 042
     Dates: start: 20171124, end: 20171124
  129. METOCLOPRAMIDE. [Concomitant]
     Active Substance: METOCLOPRAMIDE
     Dosage: 10 MILLIGRAM
     Route: 042
     Dates: start: 20180112, end: 20180112
  130. PALONOSETRON. [Concomitant]
     Active Substance: PALONOSETRON HYDROCHLORIDE
     Dosage: 5 MILLIGRAM
     Route: 042
     Dates: start: 20171103, end: 20171103
  131. PALONOSETRON. [Concomitant]
     Active Substance: PALONOSETRON HYDROCHLORIDE
     Dosage: 5 MILLIGRAM
     Route: 042
     Dates: start: 20180126, end: 20180126
  132. DOXEPIN [Concomitant]
     Active Substance: DOXEPIN
     Indication: RASH
     Route: 061
     Dates: start: 20180223, end: 20180223
  133. CEPHALEXIN. [Concomitant]
     Active Substance: CEPHALEXIN
     Indication: PEMPHIGOID
     Dosage: 500 MILLIGRAM
     Route: 048
     Dates: start: 20200424, end: 20200426
  134. SALICYLIC ACID. [Concomitant]
     Active Substance: SALICYLIC ACID
     Dosage: 1 APPLICATION
     Route: 048
     Dates: start: 20200424, end: 20200426
  135. FOLIC ACID. [Concomitant]
     Active Substance: FOLIC ACID
     Indication: PEMPHIGOID
     Route: 048
     Dates: start: 20200716
  136. RINDERON V [Concomitant]
     Active Substance: BETAMETHASONE VALERATE
     Indication: PEMPHIGOID
     Dosage: 1 APPLICATION
     Route: 061
     Dates: start: 20200630, end: 20200712
  137. DEXTROSE. [Concomitant]
     Active Substance: DEXTROSE
     Indication: APPENDICITIS
     Dosage: 500 MILLILITER
     Route: 042
     Dates: start: 20200724, end: 20200724
  138. DURVALUMAB. [Suspect]
     Active Substance: DURVALUMAB
     Dosage: 75 MILLIGRAM
     Route: 042
     Dates: start: 20171124, end: 20171124
  139. DURVALUMAB. [Suspect]
     Active Substance: DURVALUMAB
     Dosage: 1500 MILLIGRAM
     Route: 042
     Dates: start: 20180518, end: 20180518
  140. DURVALUMAB. [Suspect]
     Active Substance: DURVALUMAB
     Dosage: 1500 MILLIGRAM
     Route: 042
     Dates: start: 20190712, end: 20190712
  141. DURVALUMAB. [Suspect]
     Active Substance: DURVALUMAB
     Dosage: 1500 MILLIGRAM
     Route: 042
     Dates: start: 20191101, end: 20191101
  142. DURVALUMAB. [Suspect]
     Active Substance: DURVALUMAB
     Dosage: 1500 MILLIGRAM
     Route: 042
     Dates: start: 20191227, end: 20191227
  143. DURVALUMAB. [Suspect]
     Active Substance: DURVALUMAB
     Dosage: 1500 MILLIGRAM
     Route: 042
     Dates: start: 20200121, end: 20200121
  144. TREMELIMUMAB. [Concomitant]
     Active Substance: TREMELIMUMAB
     Dosage: 75 MILLIGRAM
     Route: 042
     Dates: start: 20171222, end: 20171222
  145. CARBOPLATIN. [Concomitant]
     Active Substance: CARBOPLATIN
     Dosage: 5 AUC
     Route: 042
     Dates: start: 20171124, end: 20171124
  146. CLOBETASOL [Concomitant]
     Active Substance: CLOBETASOL
     Indication: SKIN PLAQUE
     Dosage: 1 APPLICATION
     Route: 061
     Dates: start: 20200714
  147. DEXAMETHASONE. [Concomitant]
     Active Substance: DEXAMETHASONE
     Dosage: 10 MILLIGRAM
     Route: 042
     Dates: start: 20171124, end: 20171124
  148. DEXAMETHASONE. [Concomitant]
     Active Substance: DEXAMETHASONE
     Dosage: 10 MILLIGRAM
     Route: 042
     Dates: start: 20171222, end: 20171222
  149. DEXAMETHASONE. [Concomitant]
     Active Substance: DEXAMETHASONE
     Dosage: 10 MILLIGRAM
     Route: 042
     Dates: start: 20180209, end: 20180209
  150. DIPHENHYDRAMINE. [Concomitant]
     Active Substance: DIPHENHYDRAMINE
     Dosage: 30 MILLIGRAM
     Route: 042
     Dates: start: 20180105, end: 20180105
  151. PALONOSETRON. [Concomitant]
     Active Substance: PALONOSETRON HYDROCHLORIDE
     Dosage: 5 MILLIGRAM
     Route: 042
     Dates: start: 20171215, end: 20171215
  152. PALONOSETRON. [Concomitant]
     Active Substance: PALONOSETRON HYDROCHLORIDE
     Dosage: 5 MILLIGRAM
     Route: 042
     Dates: start: 20180202, end: 20180202
  153. FILGRASTIM [Concomitant]
     Active Substance: FILGRASTIM
     Dosage: 300 MICROGRAM
     Route: 058
     Dates: start: 20171229, end: 20171230
  154. BETAMETHASONE DIPROPIONATE. [Concomitant]
     Active Substance: BETAMETHASONE DIPROPIONATE
     Indication: PEMPHIGOID
     Dosage: 1 APPLICATION
     Route: 061
     Dates: start: 20200504, end: 20200513
  155. METHYLPREDNISOLONE. [Concomitant]
     Active Substance: METHYLPREDNISOLONE
     Indication: PEMPHIGOID
     Dosage: 12 MILLIGRAM
     Route: 048
     Dates: start: 20200511, end: 20200513
  156. PREDNISOLONE. [Concomitant]
     Active Substance: PREDNISOLONE
     Dosage: 20 MICROGRAM
     Route: 048
     Dates: start: 20200630, end: 20200719
  157. ABRAXANE [Suspect]
     Active Substance: PACLITAXEL
     Dosage: 100 MILLIGRAM/SQ. METER
     Route: 041
     Dates: start: 20171208, end: 20171208
  158. DURVALUMAB. [Suspect]
     Active Substance: DURVALUMAB
     Dosage: 1500 MILLIGRAM
     Route: 042
     Dates: start: 20180810, end: 20180810
  159. DURVALUMAB. [Suspect]
     Active Substance: DURVALUMAB
     Dosage: 1500 MILLIGRAM
     Route: 042
     Dates: start: 20180907, end: 20180907
  160. TREMELIMUMAB. [Concomitant]
     Active Substance: TREMELIMUMAB
     Dosage: 75 MILLIGRAM
     Route: 042
     Dates: start: 20180323, end: 20180323
  161. LOSARTAN. [Concomitant]
     Active Substance: LOSARTAN
     Indication: HYPERTENSION
     Dosage: 50 MILLIGRAM
     Route: 048
     Dates: start: 201412
  162. LEVOCETIRIZINE [Concomitant]
     Active Substance: LEVOCETIRIZINE
     Dosage: 10 MILLIGRAM
     Route: 048
     Dates: start: 20200714
  163. TETRACYCLINE [Concomitant]
     Active Substance: TETRACYCLINE
     Dosage: 10 MILLIGRAM
     Route: 061
     Dates: start: 20200714
  164. DIPHENHYDRAMINE. [Concomitant]
     Active Substance: DIPHENHYDRAMINE
     Dosage: 30 MILLIGRAM
     Route: 042
     Dates: start: 20171103, end: 20171103
  165. DIPHENHYDRAMINE. [Concomitant]
     Active Substance: DIPHENHYDRAMINE
     Dosage: 30 MILLIGRAM
     Route: 042
     Dates: start: 20171215, end: 20171215
  166. FAMOTIDINE. [Concomitant]
     Active Substance: FAMOTIDINE
     Indication: GASTRITIS PROPHYLAXIS
     Dosage: 20 MILLIGRAM
     Route: 042
     Dates: start: 20171027, end: 20171027
  167. FAMOTIDINE. [Concomitant]
     Active Substance: FAMOTIDINE
     Dosage: 20 MILLIGRAM
     Route: 042
     Dates: start: 20171103, end: 20171103
  168. FAMOTIDINE. [Concomitant]
     Active Substance: FAMOTIDINE
     Dosage: 20 MILLIGRAM
     Route: 042
     Dates: start: 20180126, end: 20180126
  169. FAMOTIDINE. [Concomitant]
     Active Substance: FAMOTIDINE
     Dosage: 20 MILLIGRAM
     Route: 042
     Dates: start: 20180202, end: 20180202
  170. METOCLOPRAMIDE. [Concomitant]
     Active Substance: METOCLOPRAMIDE
     Dosage: 10 MILLIGRAM
     Route: 042
     Dates: start: 20171215, end: 20171215
  171. METOCLOPRAMIDE. [Concomitant]
     Active Substance: METOCLOPRAMIDE
     Dosage: 10 MILLIGRAM
     Route: 042
     Dates: start: 20171222, end: 20171222
  172. DOXYCYCLINE. [Concomitant]
     Active Substance: DOXYCYCLINE
     Indication: INFECTION
     Dosage: 2 DOSAGE FORMS
     Route: 048
     Dates: start: 20200421, end: 20200502
  173. DOXYCYCLINE. [Concomitant]
     Active Substance: DOXYCYCLINE
     Indication: PEMPHIGOID
     Dosage: 200 MICROGRAM
     Route: 048
     Dates: start: 20200529, end: 20200604
  174. SALICYLIC ACID. [Concomitant]
     Active Substance: SALICYLIC ACID
     Indication: PEMPHIGOID
     Dosage: 1 APPLICATION
     Route: 048
     Dates: start: 20200504, end: 20200513

REACTIONS (3)
  - Appendicitis [Recovered/Resolved]
  - Pneumonia [Recovered/Resolved]
  - Pemphigoid [Not Recovered/Not Resolved]

NARRATIVE: CASE EVENT DATE: 20200421
